FAERS Safety Report 7547425-3 (Version None)
Quarter: 2011Q2

REPORT INFORMATION
  Report Type: 
  Country: None (occurrence: None)
  Receive Date: 20110614
  Receipt Date: 20090930
  Transmission Date: 20111010
  Serious: Yes (Other)
  Sender: FDA-Public Use
  Company Number: US-BAYER-200940896NA

PATIENT
  Age: 85 Year
  Sex: Male
  Weight: 79.1 kg

DRUGS (16)
  1. SIMVASTATIN [Concomitant]
     Dosage: 10MG DAILY
     Route: 048
  2. INSULIN [Concomitant]
     Dosage: UNK
     Route: 042
     Dates: start: 20070612
  3. VASOPRESSIN [Concomitant]
     Dosage: UNK
     Route: 042
     Dates: start: 20070612
  4. PROTAMINE SULFATE [Concomitant]
     Dosage: 350MG
     Route: 042
     Dates: start: 20070612, end: 20070612
  5. AMIODARONE HCL [Concomitant]
     Dosage: 200MG TWICE DAILY
     Route: 048
     Dates: start: 20070319
  6. AMICAR [Concomitant]
     Indication: AORTIC VALVE REPLACEMENT
     Dosage: 40 ML, ONCE, PUMP PRIME DOSE
     Route: 042
     Dates: start: 20070612, end: 20070612
  7. AMIODARONE HCL [Concomitant]
     Dosage: UNK
     Route: 042
     Dates: start: 20070612, end: 20070612
  8. TERAZOSIN HCL [Concomitant]
     Dosage: 5MG DAILY
     Route: 048
     Dates: end: 20070319
  9. HYDROCHLOROTHIAZIDE [Concomitant]
     Dosage: 25MG TWICE DAILY
     Route: 048
     Dates: end: 20070323
  10. AMICAR [Concomitant]
     Dosage: 24 KIU
     Route: 042
     Dates: start: 20070612, end: 20070612
  11. ACETYLSALICYLIC ACID SRT [Concomitant]
     Dosage: 81MG TWO TABLETS DAILY
     Route: 048
     Dates: start: 20030320
  12. LASIX [Concomitant]
     Dosage: 40MG DAILY
     Route: 048
     Dates: start: 20070319
  13. TRASYLOL [Suspect]
     Indication: AORTIC VALVE REPLACEMENT
     Dosage: UNK
     Route: 042
     Dates: start: 20070612, end: 20070612
  14. METOPROLOL [Concomitant]
     Dosage: 50MG HALF TABLET TWICE DAILY
     Route: 048
     Dates: start: 20070319
  15. LISINOPRIL [Concomitant]
     Dosage: 40MG DAILY
     Route: 048
  16. VERAPAMIL SLOW RELEASE [Concomitant]
     Dosage: 240MG THREE TIMES A DAY
     Route: 048
     Dates: start: 19971027, end: 20070319

REACTIONS (11)
  - RENAL FAILURE [None]
  - UNEVALUABLE EVENT [None]
  - ANXIETY [None]
  - MULTI-ORGAN FAILURE [None]
  - INJURY [None]
  - PAIN [None]
  - DEPRESSION [None]
  - ANHEDONIA [None]
  - DISABILITY [None]
  - RENAL INJURY [None]
  - FEAR [None]
